FAERS Safety Report 20381020 (Version 2)
Quarter: 2022Q1

REPORT INFORMATION
  Report Type: Spontaneous
  Country: US (occurrence: US)
  Receive Date: 20220127
  Receipt Date: 20220209
  Transmission Date: 20220424
  Serious: No
  Sender: FDA-Public Use
  Company Number: US-JNJFOC-20220142296

PATIENT
  Sex: Male
  Weight: 60 kg

DRUGS (5)
  1. UPTRAVI [Suspect]
     Active Substance: SELEXIPAG
     Indication: Pulmonary hypertension
     Route: 048
  2. OPSUMIT [Suspect]
     Active Substance: MACITENTAN
     Indication: Product used for unknown indication
     Route: 048
  3. SILDENAFIL CITRATE [Concomitant]
     Active Substance: SILDENAFIL CITRATE
  4. NIFEDIPINE [Concomitant]
     Active Substance: NIFEDIPINE
  5. WARFARIN [Concomitant]
     Active Substance: WARFARIN

REACTIONS (3)
  - Hypoacusis [Unknown]
  - Amnesia [Unknown]
  - Fatigue [Unknown]
